FAERS Safety Report 7308414-7 (Version None)
Quarter: 2011Q1

REPORT INFORMATION
  Report Type: 
  Country: None (occurrence: None)
  Receive Date: 20110211
  Receipt Date: 20110131
  Transmission Date: 20110831
  Serious: Yes (Hospitalization)
  Sender: FDA-Public Use
  Company Number: LEO-2011-00025

PATIENT
  Age: 89 Year
  Sex: Male

DRUGS (3)
  1. ALLOPURINOL [Concomitant]
  2. INNOHEP [Suspect]
     Indication: EMBOLISM VENOUS
     Dosage: 16000 IU (16000 IU,1 IN 1 D),SUBCUTANEOUS
     Route: 058
     Dates: start: 20101130, end: 20101227
  3. ASPAVOR (ATORVASTATIN CALCIUM) [Concomitant]

REACTIONS (1)
  - DEEP VEIN THROMBOSIS [None]
